FAERS Safety Report 6080745-0 (Version None)
Quarter: 2009Q1

REPORT INFORMATION
  Report Type: 
  Country: None (occurrence: None)
  Receive Date: 20090217
  Receipt Date: 20090209
  Transmission Date: 20090719
  Serious: Yes (Disabling)
  Sender: FDA-Public Use
  Company Number: GB-TEVA-111881ISR

PATIENT
  Sex: Female

DRUGS (7)
  1. SALAMOL CFC-FREE INHALER [Suspect]
     Indication: COUGH
     Route: 055
     Dates: start: 20050927, end: 20060222
  2. QVAR EASI-BREATHE 100 MICROGRAMS PER ACTUATION INHALER [Suspect]
     Indication: COUGH
     Route: 055
     Dates: start: 20051006, end: 20060222
  3. QVAR EASI-BREATHE 100 MICROGRAMS PER ACTUATION INHALER [Suspect]
     Dates: start: 20060410, end: 20060424
  4. PREDNISOLONE [Concomitant]
     Indication: COUGH
     Route: 048
     Dates: start: 20051018, end: 20051028
  5. FERROUS SULFATE TAB [Concomitant]
     Indication: HAEMOGLOBIN DECREASED
     Route: 048
     Dates: start: 20050101, end: 20060222
  6. ACETYLCYSTEINE [Concomitant]
     Indication: INCREASED VISCOSITY OF BRONCHIAL SECRETION
     Route: 048
     Dates: start: 20060209, end: 20060226
  7. NACLOGY [Concomitant]
     Route: 055
     Dates: start: 20060202, end: 20060226

REACTIONS (3)
  - BURNOUT SYNDROME [None]
  - HYPERVENTILATION [None]
  - PSYCHOSOMATIC DISEASE [None]
